FAERS Safety Report 9499789 (Version 1)
Quarter: 2013Q1

REPORT INFORMATION
  Report Type: Spontaneous
  Country: US (occurrence: None)
  Receive Date: 20130107
  Receipt Date: 20130107
  Transmission Date: 20140127
  Serious: No
  Sender: FDA-Public Use
  Company Number: PHEH2012US022578

PATIENT
  Sex: Female
  Weight: 54.4 kg

DRUGS (10)
  1. GILENYA [Suspect]
     Indication: MULTIPLE SCLEROSIS
     Route: 048
  2. CYMBALTA (DULOXETINE HYDROCHLORIDE) [Concomitant]
  3. ESTRADERM (ESTRADIOL) [Concomitant]
  4. ALLEGRA (FEXOFENADINE HYDROCHLORIDE) TABLET [Concomitant]
  5. TRAZODONE (TRAZODONE) TABLET [Concomitant]
  6. LORAZEPAM (LORAZEPAM) TABLET [Concomitant]
  7. LAMICTAL(LAMOTRIGINE) [Concomitant]
  8. BUPROPION (BUPROPION) EXTENDED RELEASE TABLET [Concomitant]
  9. MULTIVITAMINS (ASCORBIC ACID, ERGOCALCIFEROL, FOLIC ACID, NICOTINAMIDE, PANTHENOL, RETINOL, RIBOFLAVIN, THIAMINE HYDROCHLORIDE) CAPSULE [Concomitant]
  10. VITAMIN D3 (COLECALCIFEROL) CAPSULE [Concomitant]

REACTIONS (4)
  - Memory impairment [None]
  - Fatigue [None]
  - Headache [None]
  - Heart rate decreased [None]
